FAERS Safety Report 19450189 (Version 4)
Quarter: 2021Q3

REPORT INFORMATION
  Report Type: Report from Study
  Country: BR (occurrence: BR)
  Receive Date: 20210622
  Receipt Date: 20210831
  Transmission Date: 20211014
  Serious: Yes (Hospitalization, Other)
  Sender: FDA-Public Use
  Company Number: BR-GILEAD-2021-0534558

PATIENT
  Age: 66 Year
  Sex: Male

DRUGS (22)
  1. METOPROLOL TARTRATE. [Concomitant]
     Active Substance: METOPROLOL TARTRATE
  2. REMDESIVIR. [Suspect]
     Active Substance: REMDESIVIR
     Indication: COVID-19
     Dosage: QD
     Route: 042
     Dates: start: 20210427
  3. OMEPRAZOLE. [Concomitant]
     Active Substance: OMEPRAZOLE
  4. METFORMIN [Concomitant]
     Active Substance: METFORMIN HYDROCHLORIDE
  5. BLINDED INFLIXIMAB [Suspect]
     Active Substance: INFLIXIMAB
     Indication: COVID-19
     Dosage: ONCE
     Route: 042
     Dates: start: 20210427
  6. CLONAZEPAM. [Concomitant]
     Active Substance: CLONAZEPAM
  7. DEXAMETHASONE PHOSPHATE [Concomitant]
     Active Substance: DEXAMETHASONE PHOSPHATE
  8. ENALAPRIL [Concomitant]
     Active Substance: ENALAPRIL
  9. CEFEPIME [Concomitant]
     Active Substance: CEFEPIME HYDROCHLORIDE
  10. DOMPERIDONE [Concomitant]
     Active Substance: DOMPERIDONE
  11. METOPROLOL SUCCINATE. [Concomitant]
     Active Substance: METOPROLOL SUCCINATE
  12. BISACODYL. [Concomitant]
     Active Substance: BISACODYL
  13. INSULIN HUMAN [Concomitant]
     Active Substance: INSULIN HUMAN
  14. INSULIN HUMAN INJECTION, ISOPHANE [Concomitant]
     Active Substance: INSULIN HUMAN
  15. ENOXAPARIN [Concomitant]
     Active Substance: ENOXAPARIN
  16. METAMIZOLE [Concomitant]
     Active Substance: METAMIZOLE
  17. METOPROLOL. [Concomitant]
     Active Substance: METOPROLOL
  18. ZOLPIDEM [Concomitant]
     Active Substance: ZOLPIDEM TARTRATE
  19. PLACEBO [Suspect]
     Active Substance: UNSPECIFIED INGREDIENT
     Indication: COVID-19
     Dosage: ONCE
     Route: 042
     Dates: start: 20210427
  20. ISOPHANE INSULIN [Concomitant]
     Active Substance: INSULIN NOS
  21. LACTULOSE. [Concomitant]
     Active Substance: LACTULOSE
  22. SPIRONOLACTONE. [Concomitant]
     Active Substance: SPIRONOLACTONE

REACTIONS (3)
  - Tuberculous pleurisy [Not Recovered/Not Resolved]
  - Pneumonia bacterial [Recovered/Resolved]
  - Thoracic cavity drainage [Recovered/Resolved]

NARRATIVE: CASE EVENT DATE: 20210518
